FAERS Safety Report 5831659-X (Version None)
Quarter: 2008Q3

REPORT INFORMATION
  Report Type: 
  Country: None (occurrence: None)
  Receive Date: 20080730
  Receipt Date: 20080714
  Transmission Date: 20090109
  Serious: Yes (Hospitalization)
  Sender: FDA-Public Use
  Company Number: 2008S1006945

PATIENT
  Age: 53 Year
  Sex: Female
  Weight: 51.2565 kg

DRUGS (4)
  1. FLEET ENEMA (SODIUM PHOSPHATE) [Suspect]
     Indication: CONSTIPATION
     Dosage: 133 ML;X1;RTL
     Route: 054
     Dates: start: 20080623, end: 20080623
  2. KLONOPIN [Concomitant]
  3. HYDROCHLOROTHIAZIDE [Concomitant]
  4. DESYREL [Concomitant]

REACTIONS (7)
  - BURNING SENSATION [None]
  - DIARRHOEA [None]
  - FLATULENCE [None]
  - GASTRITIS [None]
  - MUSCLE SPASMS [None]
  - PHARMACEUTICAL PRODUCT COMPLAINT [None]
  - PROCTALGIA [None]
